FAERS Safety Report 18590003 (Version 1)
Quarter: 2020Q4

REPORT INFORMATION
  Report Type: Spontaneous
  Country: US (occurrence: US)
  Receive Date: 20201207
  Receipt Date: 20201207
  Transmission Date: 20210114
  Serious: Yes (Hospitalization)
  Sender: FDA-Public Use
  Company Number: None

PATIENT
  Age: 55 Year
  Sex: Female
  Weight: 84 kg

DRUGS (3)
  1. TUKYSA [Suspect]
     Active Substance: TUCATINIB
     Indication: BREAST CANCER STAGE IV
     Route: 048
     Dates: start: 20201119, end: 20201206
  2. XELODA [Suspect]
     Active Substance: CAPECITABINE
     Indication: BREAST CANCER STAGE IV
     Route: 048
     Dates: start: 20201119, end: 20201206
  3. XELODA [Concomitant]
     Active Substance: CAPECITABINE
     Dates: start: 20201119, end: 20201206

REACTIONS (1)
  - Vomiting [None]

NARRATIVE: CASE EVENT DATE: 20201206
